FAERS Safety Report 24768140 (Version 1)
Quarter: 2024Q4

REPORT INFORMATION
  Report Type: Spontaneous
  Country: FR (occurrence: FR)
  Receive Date: 20241223
  Receipt Date: 20241223
  Transmission Date: 20250114
  Serious: Yes (Hospitalization, Other)
  Sender: B BRAUN
  Company Number: FR-B.Braun Medical Inc.-2167645

PATIENT
  Age: 61 Year
  Sex: Female

DRUGS (4)
  1. METRONIDAZOLE [Suspect]
     Active Substance: METRONIDAZOLE
     Indication: Helicobacter infection
  2. AMOXICILLIN [Suspect]
     Active Substance: AMOXICILLIN
  3. OMEPRAZOLE [Concomitant]
     Active Substance: OMEPRAZOLE
  4. CLARITHROMYCIN [Suspect]
     Active Substance: CLARITHROMYCIN

REACTIONS (1)
  - Mania [Recovered/Resolved]
